FAERS Safety Report 21400454 (Version 3)
Quarter: 2023Q2

REPORT INFORMATION
  Report Type: Report from Study
  Country: US (occurrence: US)
  Receive Date: 20221003
  Receipt Date: 20230414
  Transmission Date: 20230722
  Serious: Yes (Other)
  Sender: FDA-Public Use
  Company Number: US-ABBVIE-4134991

PATIENT
  Sex: Female

DRUGS (1)
  1. SKYRIZI [Suspect]
     Active Substance: RISANKIZUMAB-RZAA
     Indication: Psoriasis
     Route: 058
     Dates: start: 20220624

REACTIONS (4)
  - Surgery [Unknown]
  - Post procedural infection [Recovering/Resolving]
  - Impaired healing [Recovered/Resolved]
  - Allergic reaction to excipient [Recovered/Resolved]
